FAERS Safety Report 20000326 (Version 1)
Quarter: 2021Q4

REPORT INFORMATION
  Report Type: Spontaneous
  Country: CA (occurrence: CA)
  Receive Date: 20211026
  Receipt Date: 20211026
  Transmission Date: 20220303
  Serious: Yes (Death)
  Sender: FDA-Public Use
  Company Number: CA-TEVA-2021-CA-1969722

PATIENT
  Age: 46 Year
  Sex: Male
  Weight: 104 kg

DRUGS (7)
  1. RAMIPRIL [Suspect]
     Active Substance: RAMIPRIL
     Indication: Hypertension
     Dosage: 15 MILLIGRAM DAILY;
     Route: 048
  2. CLONAZEPAM [Concomitant]
     Active Substance: CLONAZEPAM
  3. DIAZEPAM [Concomitant]
     Active Substance: DIAZEPAM
  4. HYDROCHLOROTHIAZIDE [Concomitant]
     Active Substance: HYDROCHLOROTHIAZIDE
  5. IRON [Concomitant]
     Active Substance: IRON
  6. NALTREXONE [Concomitant]
     Active Substance: NALTREXONE
  7. VITAMIN B1 [Concomitant]
     Active Substance: THIAMINE HYDROCHLORIDE

REACTIONS (3)
  - Anaphylactic shock [Fatal]
  - Brain hypoxia [Fatal]
  - Cardio-respiratory arrest [Fatal]
